FAERS Safety Report 8368979-3 (Version None)
Quarter: 2012Q2

REPORT INFORMATION
  Report Type: 
  Country: None (occurrence: None)
  Receive Date: 20120518
  Receipt Date: 20120514
  Transmission Date: 20120825
  Serious: Yes (Other)
  Sender: FDA-Public Use
  Company Number: US-PFIZER INC-2012111093

PATIENT
  Sex: Female
  Weight: 83.9 kg

DRUGS (1)
  1. LYRICA [Suspect]
     Indication: FIBROMYALGIA
     Dosage: UNK
     Route: 048
     Dates: start: 20090101

REACTIONS (6)
  - IRRITABLE BOWEL SYNDROME [None]
  - PAIN [None]
  - WEIGHT INCREASED [None]
  - INSOMNIA [None]
  - OEDEMA PERIPHERAL [None]
  - DRUG INEFFECTIVE [None]
